FAERS Safety Report 18807601 (Version 1)
Quarter: 2021Q1

REPORT INFORMATION
  Report Type: Spontaneous
  Country: US (occurrence: US)
  Receive Date: 20210129
  Receipt Date: 20210129
  Transmission Date: 20210419
  Serious: No
  Sender: FDA-Public Use
  Company Number: US-TEVA-2021-US-1872225

PATIENT
  Age: 78 Year
  Sex: Female

DRUGS (2)
  1. ENVARSUS XR [Suspect]
     Active Substance: TACROLIMUS
     Dosage: UNKNOWN FORM STRENGTH
     Route: 065
  2. CYCLOSPORINE MODIFIED [Suspect]
     Active Substance: CYCLOSPORINE
     Indication: RENAL TRANSPLANT
     Dosage: THREE 25 MG CAPSULES IN THE MORNING AND THREE 25 MG CAPSULES AT NIGHT
     Route: 065

REACTIONS (4)
  - Insomnia [Not Recovered/Not Resolved]
  - Hirsutism [Not Recovered/Not Resolved]
  - Breast swelling [Recovered/Resolved]
  - Gingival swelling [Not Recovered/Not Resolved]
